FAERS Safety Report 12930189 (Version 1)
Quarter: 2016Q4

REPORT INFORMATION
  Report Type: Spontaneous
  Country: None (occurrence: US)
  Receive Date: 20161110
  Receipt Date: 20161110
  Transmission Date: 20170207
  Serious: No
  Sender: FDA-Public Use
  Company Number: US-RARE DISEASE THERAPEUTICS, INC.-1059433

PATIENT
  Age: 11 Year
  Sex: Male
  Weight: 43.8 kg

DRUGS (10)
  1. VITAMIN B12 [Concomitant]
     Active Substance: CYANOCOBALAMIN
  2. ASPIRIN. [Concomitant]
     Active Substance: ASPIRIN
  3. SERTRALINE [Concomitant]
     Active Substance: SERTRALINE HYDROCHLORIDE
  4. CYSTADANE [Suspect]
     Active Substance: BETAINE
     Dates: start: 20160921
  5. LEUCOVORIN. [Concomitant]
     Active Substance: LEUCOVORIN
  6. GUANFACINE. [Concomitant]
     Active Substance: GUANFACINE
  7. RISPERIDONE. [Concomitant]
     Active Substance: RISPERIDONE
  8. CLONIDINE. [Concomitant]
     Active Substance: CLONIDINE
  9. SINGULAIR [Concomitant]
     Active Substance: MONTELUKAST SODIUM
  10. VITAMIN B6 [Concomitant]
     Active Substance: PYRIDOXINE HYDROCHLORIDE

REACTIONS (2)
  - Ear infection [Not Recovered/Not Resolved]
  - Underdose [None]

NARRATIVE: CASE EVENT DATE: 20160921
